FAERS Safety Report 18082791 (Version 2)
Quarter: 2021Q1

REPORT INFORMATION
  Report Type: Spontaneous
  Country: US (occurrence: US)
  Receive Date: 20200728
  Receipt Date: 20210131
  Transmission Date: 20210419
  Serious: Yes (Death, Disabling, Other)
  Sender: FDA-Public Use
  Company Number: US-PURDUE-USA-2020-0159763

PATIENT
  Sex: Male

DRUGS (1)
  1. OXYCONTIN [Suspect]
     Active Substance: OXYCODONE HYDROCHLORIDE
     Indication: BACK PAIN
     Dosage: UNK
     Route: 048

REACTIONS (9)
  - Anxiety [Unknown]
  - Cardiac disorder [Unknown]
  - Depression [Unknown]
  - Drug dependence [Fatal]
  - Psychological trauma [Unknown]
  - Stress [Unknown]
  - Overdose [Fatal]
  - Imprisonment [Unknown]
  - Road traffic accident [Unknown]
